FAERS Safety Report 17169109 (Version 1)
Quarter: 2019Q4

REPORT INFORMATION
  Report Type: Spontaneous
  Country: US (occurrence: US)
  Receive Date: 20191218
  Receipt Date: 20191218
  Transmission Date: 20200122
  Serious: Yes (Other)
  Sender: FDA-Public Use
  Company Number: US-DRREDDYS-USA/USA/19/0117263

PATIENT
  Sex: Male
  Weight: 90 kg

DRUGS (2)
  1. TACROLIMUS CAPSULES [Suspect]
     Active Substance: TACROLIMUS
     Indication: TRANSPLANT REJECTION
     Dosage: 3.5 MG EVERY MORNING AND 3 MG EVERY EVENING
     Route: 048
     Dates: start: 201907, end: 201910
  2. TACROLIMUS CAPSULES [Suspect]
     Active Substance: TACROLIMUS
     Dosage: SWITCHED TO 3.5 MG TWICE DAILY IN MID OF OCTOBER 2019
     Route: 048

REACTIONS (2)
  - Drug ineffective [Unknown]
  - Product quality issue [Unknown]
